FAERS Safety Report 4901891-8 (Version None)
Quarter: 2006Q1

REPORT INFORMATION
  Report Type: 
  Country: None (occurrence: None)
  Receive Date: 20060202
  Receipt Date: 20060202
  Transmission Date: 20060701
  Serious: Yes (Hospitalization)
  Sender: FDA-Public Use
  Company Number: None

PATIENT
  Sex: Male
  Weight: 83.8 kg

DRUGS (5)
  1. ANASTROZOLE [Suspect]
     Indication: HYPOGONADISM
     Dosage: 1 MG PO QD
     Route: 048
     Dates: start: 20050616, end: 20060201
  2. GLUCOTROL [Concomitant]
  3. METFORMIN HYDROCHLORIDE [Concomitant]
  4. ACTOS [Concomitant]
  5. ZOCOR [Concomitant]

REACTIONS (5)
  - ASTHENIA [None]
  - CAROTID ARTERIAL EMBOLUS [None]
  - CAROTID ARTERY STENOSIS [None]
  - GAIT DISTURBANCE [None]
  - INFARCTION [None]
